FAERS Safety Report 5546588-9 (Version None)
Quarter: 2007Q4

REPORT INFORMATION
  Report Type: 
  Country: None (occurrence: None)
  Receive Date: 20071211
  Receipt Date: 20071206
  Transmission Date: 20080405
  Serious: Yes (Death, Life-Threatening)
  Sender: FDA-Public Use
  Company Number: JP-JNJFOC-20071202026

PATIENT
  Sex: Male

DRUGS (7)
  1. DORIBAX [Suspect]
     Route: 041
  2. DORIBAX [Suspect]
     Route: 041
  3. DORIBAX [Suspect]
     Indication: PERITONITIS
     Route: 041
  4. PRODIF [Concomitant]
     Indication: PERITONITIS
     Route: 042
  5. PANABATE [Concomitant]
     Route: 041
  6. ELASPOL [Concomitant]
     Route: 041
  7. PREDONINE [Concomitant]
     Route: 042

REACTIONS (3)
  - HEPATIC FUNCTION ABNORMAL [None]
  - PERITONITIS [None]
  - RENAL IMPAIRMENT [None]
